FAERS Safety Report 11168164 (Version 1)
Quarter: 2015Q2

REPORT INFORMATION
  Report Type: Spontaneous
  Country: US (occurrence: None)
  Receive Date: 20150604
  Receipt Date: 20150604
  Transmission Date: 20150821
  Serious: Yes (Hospitalization, Other)
  Sender: FDA-Public Use
  Company Number: None

PATIENT
  Age: 73 Year
  Sex: Female
  Weight: 92.53 kg

DRUGS (1)
  1. TYLENOL [Suspect]
     Active Substance: ACETAMINOPHEN
     Indication: PAIN
     Dosage: OTC TWO PILLS TWICE OR MORE A;   TWICE TO FOUR
     Route: 048

REACTIONS (9)
  - Head injury [None]
  - Joint hyperextension [None]
  - Fall [None]
  - Contusion [None]
  - Traumatic haematoma [None]
  - Muscle spasms [None]
  - Loss of control of legs [None]
  - Gait disturbance [None]
  - Hypoaesthesia [None]

NARRATIVE: CASE EVENT DATE: 20150324
